FAERS Safety Report 22312631 (Version 1)
Quarter: 2023Q2

REPORT INFORMATION
  Report Type: Spontaneous
  Country: US (occurrence: US)
  Receive Date: 20230512
  Receipt Date: 20230512
  Transmission Date: 20230722
  Serious: Yes (Hospitalization, Other)
  Sender: FDA-Public Use
  Company Number: US-009507513-2305USA003040

PATIENT
  Age: 70 Year
  Sex: Female

DRUGS (4)
  1. KEYTRUDA [Suspect]
     Active Substance: PEMBROLIZUMAB
     Indication: Endometrial cancer
     Dosage: UNK
     Dates: start: 202303
  2. LENVATINIB MESYLATE [Suspect]
     Active Substance: LENVATINIB MESYLATE
     Indication: Endometrial cancer
     Dosage: 1 DOSAGE FORM
     Route: 048
     Dates: start: 20230411
  3. LENVATINIB MESYLATE [Suspect]
     Active Substance: LENVATINIB MESYLATE
     Dosage: 2 DOSAGE FORM
     Route: 048
     Dates: start: 202304
  4. ELIQUIS [Suspect]
     Active Substance: APIXABAN
     Dosage: UNK

REACTIONS (3)
  - Pulmonary oedema [Unknown]
  - Fatigue [Unknown]
  - Adverse reaction [Unknown]

NARRATIVE: CASE EVENT DATE: 20230101
